FAERS Safety Report 18338588 (Version 1)
Quarter: 2020Q4

REPORT INFORMATION
  Report Type: Spontaneous
  Country: DE (occurrence: DE)
  Receive Date: 20201002
  Receipt Date: 20201002
  Transmission Date: 20210113
  Serious: Yes (Hospitalization)
  Sender: FDA-Public Use
  Company Number: DE-TEVA-2020-DE-1832605

PATIENT
  Age: 71 Year
  Sex: Male
  Weight: 95 kg

DRUGS (5)
  1. IBUPROFEN. [Suspect]
     Active Substance: IBUPROFEN
     Dosage: 600 MG, IF NECESSARY
     Route: 048
  2. METAMIZOL [Concomitant]
     Active Substance: METAMIZOLE SODIUM
     Dosage: 80 GTT DAILY; 1-1-1-1
     Route: 048
  3. EDOXABAN [Concomitant]
     Active Substance: EDOXABAN TOSYLATE
     Dosage: 60 MILLIGRAM DAILY; 1-0-0-0
     Route: 048
  4. LISINOPRIL. [Concomitant]
     Active Substance: LISINOPRIL
     Dosage: .5 DOSAGE FORMS DAILY; 10 MG, 0.5-0-0-0
     Route: 048
  5. METOPROLOL. [Concomitant]
     Active Substance: METOPROLOL
     Dosage: 47.5 MILLIGRAM DAILY; 1-0-1-0
     Route: 048

REACTIONS (6)
  - Musculoskeletal pain [Unknown]
  - Angina pectoris [Unknown]
  - Dyspnoea [Unknown]
  - Tachycardia [Unknown]
  - Thirst [Unknown]
  - Hypertension [Unknown]
